FAERS Safety Report 22165799 (Version 3)
Quarter: 2023Q2

REPORT INFORMATION
  Report Type: Report from Study
  Country: JP (occurrence: JP)
  Receive Date: 20230403
  Receipt Date: 20230608
  Transmission Date: 20230722
  Serious: Yes (Death)
  Sender: FDA-Public Use
  Company Number: JP-GILEAD-2022-0576142

PATIENT
  Age: 37 Year
  Sex: Male

DRUGS (2)
  1. BICTEGRAVIR\EMTRICITABINE\TENOFOVIR ALAFENAMIDE [Suspect]
     Active Substance: BICTEGRAVIR\EMTRICITABINE\TENOFOVIR ALAFENAMIDE
     Indication: Acquired immunodeficiency syndrome
     Dosage: 1 DOSAGE FORM, QD
     Route: 048
     Dates: start: 20210209, end: 20220519
  2. SULFAMETHOXAZOLE\TRIMETHOPRIM [Concomitant]
     Active Substance: SULFAMETHOXAZOLE\TRIMETHOPRIM
     Indication: Prophylaxis
     Dosage: UNK
     Dates: start: 20210209, end: 20220519

REACTIONS (1)
  - Lymphoma [Fatal]

NARRATIVE: CASE EVENT DATE: 20211014
